FAERS Safety Report 22014390 (Version 1)
Quarter: 2023Q1

REPORT INFORMATION
  Report Type: Spontaneous
  Country: ES (occurrence: ES)
  Receive Date: 20230221
  Receipt Date: 20230221
  Transmission Date: 20230417
  Serious: Yes (Hospitalization)
  Sender: FDA-Public Use
  Company Number: None

PATIENT
  Age: 61 Year
  Sex: Male
  Weight: 56 kg

DRUGS (3)
  1. LEUCOVORIN CALCIUM [Suspect]
     Active Substance: LEUCOVORIN CALCIUM
     Indication: Gastric cancer
     Dosage: 400 MG/M2 EVERY TWO WEEKS, CALCIUM FOLINATE (1587CO), DURATION : 1 DAY
     Dates: start: 20230111, end: 20230111
  2. NIVOLUMAB [Concomitant]
     Active Substance: NIVOLUMAB
     Indication: Product used for unknown indication
     Dosage: NIVOLUMAB (9143A)
  3. FLUOROURACIL\LEUCOVORIN CALCIUM\OXALIPLATIN [Concomitant]
     Active Substance: FLUOROURACIL\LEUCOVORIN CALCIUM\OXALIPLATIN
     Indication: Product used for unknown indication
     Dosage: CALCIUM LEUCOVORIN (FOLINIC ACID) + FLUOROURACIL + OXALIPLATIN (FOLFOX) (CHEMOTHERAPY PROTOCOL)

REACTIONS (2)
  - Hypoxia [Recovered/Resolved]
  - Syncope [Recovered/Resolved]

NARRATIVE: CASE EVENT DATE: 20230111
